FAERS Safety Report 9100874 (Version 1)
Quarter: 2013Q1

REPORT INFORMATION
  Report Type: Spontaneous
  Country: AU (occurrence: AU)
  Receive Date: 20130215
  Receipt Date: 20130215
  Transmission Date: 20140127
  Serious: Yes (Other)
  Sender: FDA-Public Use
  Company Number: PHHY2013AU014596

PATIENT
  Age: 87 Year
  Sex: Female

DRUGS (3)
  1. ACLASTA [Suspect]
     Dosage: UNK
     Route: 042
     Dates: start: 20090731
  2. ACLASTA [Suspect]
     Dosage: UNK
     Route: 042
     Dates: start: 20101203
  3. ACLASTA [Suspect]
     Dosage: UNK
     Route: 042
     Dates: start: 20120224

REACTIONS (3)
  - Protein total abnormal [Unknown]
  - Blood chloride abnormal [Unknown]
  - Gamma-glutamyltransferase abnormal [Unknown]
